FAERS Safety Report 5275962-3 (Version None)
Quarter: 2007Q1

REPORT INFORMATION
  Report Type: 
  Country: None (occurrence: None)
  Receive Date: 20070326
  Receipt Date: 20070314
  Transmission Date: 20070707
  Serious: Yes (Hospitalization)
  Sender: FDA-Public Use
  Company Number: DE-ROCHE-469214

PATIENT
  Age: 5 Year
  Sex: Female
  Weight: 18.4 kg

DRUGS (3)
  1. ROCALTROL [Suspect]
     Indication: HYPOPARATHYROIDISM
     Dosage: DOSAGE REGIMEN REPORTED AS 1 X 0.25 MCG
     Route: 065
  2. 1 CONCOMITANT DRUG [Concomitant]
     Dosage: DRUG REPORTED AS PHOSPHAT EX (GENERIC UNKNOWN). DOSE REPORTED AS: 4X 2G
  3. DIFLUCAN [Concomitant]
     Dosage: DRUG REPORTED AS DIFLUCAN TS. DOSE REPORTED AS 1 X 50 MG

REACTIONS (4)
  - ADENOIDECTOMY [None]
  - ENURESIS [None]
  - KERATITIS [None]
  - PARACENTESIS [None]
